FAERS Safety Report 18177697 (Version 1)
Quarter: 2020Q3

REPORT INFORMATION
  Report Type: Spontaneous
  Country: US (occurrence: US)
  Receive Date: 20200820
  Receipt Date: 20200820
  Transmission Date: 20201103
  Serious: No
  Sender: FDA-Public Use
  Company Number: US-TEVA-2020-US-1817268

PATIENT
  Age: 80 Year
  Sex: Male

DRUGS (2)
  1. METRONIDAZOLE. [Suspect]
     Active Substance: METRONIDAZOLE
     Dosage: 2000 MILLIGRAM DAILY; 500MG EVERY 6 HOURS
     Route: 065
     Dates: start: 20200727
  2. RHODES OXYCODONE [Concomitant]
     Indication: PAIN
     Route: 065
     Dates: start: 20200727

REACTIONS (1)
  - Abdominal discomfort [Not Recovered/Not Resolved]

NARRATIVE: CASE EVENT DATE: 20200801
